FAERS Safety Report 25353073 (Version 6)
Quarter: 2025Q4

REPORT INFORMATION
  Report Type: Report from Study
  Country: US (occurrence: US)
  Receive Date: 20250523
  Receipt Date: 20251008
  Transmission Date: 20260118
  Serious: No
  Sender: MALLINCKRODT
  Company Number: US-MALLINCKRODT-MNK202503092

PATIENT
  Age: 49 Year
  Sex: Female

DRUGS (1)
  1. CORTICOTROPIN [Suspect]
     Active Substance: CORTICOTROPIN
     Indication: Sarcoidosis
     Dosage: 80 UNITS
     Route: 058
     Dates: start: 20250519

REACTIONS (8)
  - Nausea [Recovered/Resolved]
  - Injection site pain [Unknown]
  - Injection site pruritus [Recovered/Resolved]
  - Injection site bruising [Recovered/Resolved]
  - Injection site haemorrhage [Unknown]
  - Injection site discharge [Recovering/Resolving]
  - Rash macular [Unknown]
  - Underdose [Unknown]

NARRATIVE: CASE EVENT DATE: 20250101
